FAERS Safety Report 24561664 (Version 1)
Quarter: 2024Q4

REPORT INFORMATION
  Report Type: Spontaneous
  Country: AU (occurrence: AU)
  Receive Date: 20241029
  Receipt Date: 20241029
  Transmission Date: 20250115
  Serious: Yes (Hospitalization)
  Sender: MERCK
  Company Number: AU-009507513-2410AUS011485

PATIENT
  Age: 57 Year
  Sex: Female

DRUGS (2)
  1. KEYTRUDA [Suspect]
     Active Substance: PEMBROLIZUMAB
     Indication: Metastatic neoplasm
     Dosage: 200 MILLIGRAM, Q3W
     Route: 042
     Dates: start: 20230419, end: 20240605
  2. ONVAPEGLEUKIN ALFA [Suspect]
     Active Substance: ONVAPEGLEUKIN ALFA
     Indication: Metastatic neoplasm
     Dosage: 80 MICROGRAM PER KILOGRAM, Q3W
     Route: 042
     Dates: start: 20230419, end: 20240605

REACTIONS (1)
  - Respiratory acidosis [Unknown]

NARRATIVE: CASE EVENT DATE: 20240605
